FAERS Safety Report 14849091 (Version 1)
Quarter: 2018Q2

REPORT INFORMATION
  Report Type: Spontaneous
  Country: CA (occurrence: CA)
  Receive Date: 20180504
  Receipt Date: 20180504
  Transmission Date: 20180711
  Serious: Yes (Other)
  Sender: FDA-Public Use
  Company Number: CA-SA-2018SA116471

PATIENT

DRUGS (4)
  1. CHLOROQUINE. [Suspect]
     Active Substance: CHLOROQUINE
     Indication: MALARIA
     Route: 064
  2. CHLOROQUINE. [Suspect]
     Active Substance: CHLOROQUINE
     Indication: PLASMODIUM FALCIPARUM INFECTION
     Route: 064
  3. CHLOROQUINE. [Suspect]
     Active Substance: CHLOROQUINE
     Indication: MALARIA
     Dosage: AT 27 WEEKS
     Route: 064
  4. CHLOROQUINE. [Suspect]
     Active Substance: CHLOROQUINE
     Indication: PLASMODIUM FALCIPARUM INFECTION
     Dosage: AT 27 WEEKS
     Route: 064

REACTIONS (2)
  - Limb hypoplasia congenital [Unknown]
  - Foetal exposure during pregnancy [Unknown]
